FAERS Safety Report 9325605 (Version 10)
Quarter: 2017Q4

REPORT INFORMATION
  Report Type: Report from Study
  Country: DE (occurrence: DE)
  Receive Date: 20130604
  Receipt Date: 20171205
  Transmission Date: 20180321
  Serious: Yes (Death, Hospitalization)
  Sender: FDA-Public Use
  Company Number: DE-ROCHE-1231700

PATIENT
  Age: 67 Year
  Sex: Female
  Weight: 95 kg

DRUGS (27)
  1. 5-FU [Suspect]
     Active Substance: FLUOROURACIL
     Route: 040
     Dates: start: 20131106
  2. NOVAMINSULFON [Concomitant]
     Active Substance: METAMIZOLE
     Indication: PAIN
     Route: 048
  3. BEVACIZUMAB. [Suspect]
     Active Substance: BEVACIZUMAB
     Route: 042
     Dates: start: 20130715
  4. IRINOTECAN [Suspect]
     Active Substance: IRINOTECAN
     Route: 042
     Dates: start: 20130325
  5. FOLINIC ACID [Suspect]
     Active Substance: LEUCOVORIN
     Indication: COLORECTAL CANCER
     Route: 042
     Dates: start: 20130211, end: 20130311
  6. FOLINIC ACID [Suspect]
     Active Substance: LEUCOVORIN
     Route: 042
     Dates: start: 20131106
  7. FLECAINIDE [Concomitant]
     Active Substance: FLECAINIDE
     Indication: ARRHYTHMIA
     Route: 048
  8. FUROSEMID [Concomitant]
     Active Substance: FUROSEMIDE
  9. BEVACIZUMAB. [Suspect]
     Active Substance: BEVACIZUMAB
     Indication: COLORECTAL CANCER METASTATIC
     Route: 042
     Dates: start: 20130211, end: 20130211
  10. IRINOTECAN [Suspect]
     Active Substance: IRINOTECAN
     Route: 042
     Dates: start: 20130715
  11. IRINOTECAN [Suspect]
     Active Substance: IRINOTECAN
     Route: 042
     Dates: start: 20131106
  12. 5-FU [Suspect]
     Active Substance: FLUOROURACIL
     Indication: COLORECTAL CANCER
     Route: 040
     Dates: start: 20130211, end: 20130311
  13. PANTOZOL [Concomitant]
     Active Substance: PANTOPRAZOLE SODIUM
     Indication: PROPHYLAXIS
     Route: 048
  14. PHENPROCOUMON [Concomitant]
     Active Substance: PHENPROCOUMON
     Indication: ATRIAL FIBRILLATION
  15. METOCLOPRAMID [Concomitant]
     Active Substance: METOCLOPRAMIDE
     Indication: VOMITING
  16. MACROGOL [Concomitant]
     Active Substance: POLYETHYLENE GLYCOLS
     Indication: CONSTIPATION
  17. 5-FU [Suspect]
     Active Substance: FLUOROURACIL
     Route: 040
     Dates: start: 20130323, end: 20130715
  18. 5-FU [Suspect]
     Active Substance: FLUOROURACIL
     Route: 041
     Dates: start: 20131106, end: 20131108
  19. METOCLOPRAMID [Concomitant]
     Active Substance: METOCLOPRAMIDE
     Indication: NAUSEA
  20. IRINOTECAN [Suspect]
     Active Substance: IRINOTECAN
     Indication: COLORECTAL CANCER
     Route: 042
     Dates: start: 20130211, end: 20130311
  21. 5-FU [Suspect]
     Active Substance: FLUOROURACIL
     Route: 041
     Dates: start: 20130211, end: 20130313
  22. 5-FU [Suspect]
     Active Substance: FLUOROURACIL
     Route: 041
     Dates: start: 20130325, end: 20130717
  23. METOPROLOL SUCCINATE. [Concomitant]
     Active Substance: METOPROLOL SUCCINATE
     Indication: CARDIAC FAILURE
  24. FOLINIC ACID [Suspect]
     Active Substance: LEUCOVORIN
     Route: 042
     Dates: start: 20130325, end: 20130715
  25. IRINOTECAN [Suspect]
     Active Substance: IRINOTECAN
     Route: 042
     Dates: start: 20130408, end: 20130701
  26. MARCUMAR [Concomitant]
     Active Substance: PHENPROCOUMON
     Indication: ATRIAL FIBRILLATION
     Dosage: AS REQUIRED
     Route: 048
  27. OPIPRAMOL [Concomitant]
     Active Substance: OPIPRAMOL
     Indication: DEPRESSION
     Route: 048

REACTIONS (5)
  - General physical health deterioration [Not Recovered/Not Resolved]
  - Pneumonia [Recovered/Resolved]
  - Infection [Not Recovered/Not Resolved]
  - Abdominal pain upper [Recovered/Resolved]
  - Abdominal pain upper [Recovering/Resolving]

NARRATIVE: CASE EVENT DATE: 20130602
